FAERS Safety Report 4842812-6 (Version None)
Quarter: 2005Q4

REPORT INFORMATION
  Report Type: 
  Country: None (occurrence: None)
  Receive Date: 20051130
  Receipt Date: 20051122
  Transmission Date: 20060501
  Serious: Yes (Life-Threatening)
  Sender: FDA-Public Use
  Company Number: 2005RR-01192

PATIENT
  Age: 78 Year
  Sex: Female
  Weight: 80 kg

DRUGS (3)
  1. IBUPROFEN [Suspect]
     Dosage: GEL 5%, BID, TOPICAL
     Route: 061
  2. NIFEDIPINE [Concomitant]
  3. PARACETAMOL (PARACETAMOL) [Concomitant]

REACTIONS (1)
  - GASTROINTESTINAL HAEMORRHAGE [None]
